FAERS Safety Report 11756023 (Version 8)
Quarter: 2017Q3

REPORT INFORMATION
  Report Type: Spontaneous
  Country: US (occurrence: US)
  Receive Date: 20151119
  Receipt Date: 20170925
  Transmission Date: 20171127
  Serious: Yes (Disabling, Other)
  Sender: FDA-Public Use
  Company Number: US-009507513-1511USA005587

PATIENT
  Sex: Female

DRUGS (6)
  1. CHONDROITIN SULFATE SODIUM (+) GLUCOSAMINE SULFATE [Concomitant]
     Dosage: UNK
  2. ZETIA [Suspect]
     Active Substance: EZETIMIBE
     Indication: BLOOD CHOLESTEROL INCREASED
     Dosage: UNK
     Route: 048
     Dates: start: 2015, end: 201509
  3. VYTORIN [Suspect]
     Active Substance: EZETIMIBE\SIMVASTATIN
     Indication: BLOOD CHOLESTEROL INCREASED
     Dosage: 10 MG, UNK
     Route: 048
     Dates: start: 20131030, end: 20131113
  4. PRAVASTATIN. [Suspect]
     Active Substance: PRAVASTATIN
     Dosage: UNK
     Dates: start: 20140106, end: 20150327
  5. PREDNISONE. [Concomitant]
     Active Substance: PREDNISONE
     Dosage: UNK
     Route: 048
  6. ZOCOR [Suspect]
     Active Substance: SIMVASTATIN
     Dosage: UNK
     Route: 048
     Dates: start: 20131127, end: 201412

REACTIONS (13)
  - Gait inability [Not Recovered/Not Resolved]
  - Muscle spasms [Recovered/Resolved]
  - Drug effect incomplete [Not Recovered/Not Resolved]
  - Myalgia [Recovering/Resolving]
  - Muscle spasms [Recovered/Resolved]
  - Arthropathy [Not Recovered/Not Resolved]
  - Myositis [Not Recovered/Not Resolved]
  - Neuropathy peripheral [Unknown]
  - Blindness unilateral [Unknown]
  - Muscle spasms [Recovered/Resolved]
  - Amnesia [Unknown]
  - Suicidal ideation [Not Recovered/Not Resolved]
  - Muscle disorder [Recovering/Resolving]

NARRATIVE: CASE EVENT DATE: 201311
